FAERS Safety Report 10754167 (Version 4)
Quarter: 2016Q3

REPORT INFORMATION
  Report Type: Report from Study
  Country: US (occurrence: US)
  Receive Date: 20150202
  Receipt Date: 20160905
  Transmission Date: 20161109
  Serious: Yes (Hospitalization, Other)
  Sender: FDA-Public Use
  Company Number: US-ROCHE-1526354

PATIENT
  Age: 66 Year
  Sex: Female
  Weight: 79.9 kg

DRUGS (2)
  1. BEVACIZUMAB [Suspect]
     Active Substance: BEVACIZUMAB
     Indication: MALIGNANT MELANOMA
     Dosage: INDUCTION: DAY 1 OF CYCLES 1-4 (CYCLE=21 DAYS), LAST ADMINISTERED DATE: 02/APR/2015
     Route: 042
     Dates: start: 20141218
  2. IPILIMUMAB [Suspect]
     Active Substance: IPILIMUMAB
     Indication: MALIGNANT MELANOMA
     Dosage: DAY 1 OF CYCLES 1-4 (CYCLE=21 DAYS), LAST ADMINISTERED DATE: 18/FEB/2015
     Route: 042
     Dates: start: 20141218

REACTIONS (6)
  - Pancreatitis [Not Recovered/Not Resolved]
  - Hypertension [Unknown]
  - Dehydration [Not Recovered/Not Resolved]
  - Lipase [Unknown]
  - Stomatitis [Unknown]
  - Lipase increased [Recovered/Resolved]

NARRATIVE: CASE EVENT DATE: 20150105
